FAERS Safety Report 21672756 (Version 3)
Quarter: 2022Q4

REPORT INFORMATION
  Report Type: Report from Study
  Country: AU (occurrence: AU)
  Receive Date: 20221202
  Receipt Date: 20221222
  Transmission Date: 20230112
  Serious: Yes (Hospitalization)
  Sender: FDA-Public Use
  Company Number: AU-JNJFOC-20221150928

PATIENT
  Age: 57 Year
  Sex: Male
  Weight: 87.2 kg

DRUGS (31)
  1. ESKETAMINE [Suspect]
     Active Substance: ESKETAMINE
     Indication: Major depression
     Dates: start: 20160616
  2. ESKETAMINE [Suspect]
     Active Substance: ESKETAMINE
     Indication: Depression
     Dosage: 08/AUG/2022
  3. AGOMELATINE [Concomitant]
     Active Substance: AGOMELATINE
     Indication: Major depression
     Dosage: VALDOXAN
     Route: 048
     Dates: start: 20170821
  4. LEXAPRO [Concomitant]
     Active Substance: ESCITALOPRAM OXALATE
     Indication: Major depression
     Route: 048
     Dates: start: 20160616, end: 20170820
  5. LEXAPRO [Concomitant]
     Active Substance: ESCITALOPRAM OXALATE
     Route: 048
     Dates: start: 20170821, end: 20170831
  6. ZOLPIDEM TARTRATE [Concomitant]
     Active Substance: ZOLPIDEM TARTRATE
     Indication: Poor quality sleep
     Route: 048
     Dates: start: 201603, end: 20191022
  7. LORAZEPAM [Concomitant]
     Active Substance: LORAZEPAM
     Indication: Anxiety
     Route: 048
     Dates: start: 201603
  8. VALIUM [Concomitant]
     Active Substance: DIAZEPAM
     Indication: Anxiety
     Route: 048
     Dates: start: 2014
  9. ASPIRIN [Concomitant]
     Active Substance: ASPIRIN
     Indication: Polycythaemia vera
     Route: 048
     Dates: start: 2011
  10. FINASTERIDE [Concomitant]
     Active Substance: FINASTERIDE
     Indication: Alopecia
     Route: 048
     Dates: start: 2014
  11. FISH OIL [Concomitant]
     Active Substance: FISH OIL
     Indication: Prophylaxis
     Route: 048
     Dates: start: 201401
  12. GLUCOSAMINE [Concomitant]
     Active Substance: GLUCOSAMINE
     Indication: Prophylaxis
     Route: 048
     Dates: start: 201401
  13. BECONASE AQ [Concomitant]
     Active Substance: BECLOMETHASONE DIPROPIONATE MONOHYDRATE
     Indication: Seasonal allergy
     Route: 045
     Dates: start: 20180107
  14. EMTRICITABINE\TENOFOVIR DISOPROXIL [Concomitant]
     Active Substance: EMTRICITABINE\TENOFOVIR DISOPROXIL
     Indication: Prophylaxis
     Route: 048
     Dates: start: 20180706
  15. PREDNISONE [Concomitant]
     Active Substance: PREDNISONE
     Indication: Gout
     Route: 048
     Dates: start: 20190903, end: 20190908
  16. INFLUENZA VIRUS VACCINE [Concomitant]
     Active Substance: INFLUENZA VIRUS VACCINE
     Indication: Prophylaxis
     Route: 058
     Dates: start: 20220530, end: 20220530
  17. INFLUENZA VIRUS VACCINE [Concomitant]
     Active Substance: INFLUENZA VIRUS VACCINE
     Route: 030
     Dates: start: 20210510, end: 20210510
  18. INFLUENZA VIRUS VACCINE [Concomitant]
     Active Substance: INFLUENZA VIRUS VACCINE
     Dosage: 1 VIAL
     Route: 030
     Dates: start: 20220511, end: 20220511
  19. AMOXICILLIN [Concomitant]
     Active Substance: AMOXICILLIN
     Indication: Arthropod bite
     Route: 048
     Dates: start: 20201001, end: 20201006
  20. METOPROLOL [Concomitant]
     Active Substance: METOPROLOL
     Indication: Hypertension
     Route: 048
     Dates: start: 20201013, end: 20210131
  21. CEPHALEXIN [Concomitant]
     Active Substance: CEPHALEXIN
     Indication: Prophylaxis
     Route: 048
     Dates: start: 20191025, end: 20191026
  22. TELMISARTAN [Concomitant]
     Active Substance: TELMISARTAN
     Indication: Hypertension
     Route: 048
     Dates: start: 20210201
  23. ACETAMINOPHEN\CODEINE PHOSPHATE [Concomitant]
     Active Substance: ACETAMINOPHEN\CODEINE PHOSPHATE
     Indication: Arthralgia
     Dosage: 500/30 MG
     Route: 048
     Dates: start: 20220419, end: 20220430
  24. DICLOFENAC [Concomitant]
     Active Substance: DICLOFENAC
     Indication: Arthralgia
     Route: 048
     Dates: start: 20220419, end: 20220430
  25. BETAMETHASONE;BUPIVACAINE [Concomitant]
     Indication: Arthralgia
     Route: 058
     Dates: start: 20220504, end: 20220504
  26. ASTRAZENECA COVID-19 VACCINE [Concomitant]
     Active Substance: AZD-1222
     Indication: Prophylaxis
     Route: 030
     Dates: start: 20210531, end: 20210531
  27. ASTRAZENECA COVID-19 VACCINE [Concomitant]
     Active Substance: AZD-1222
     Dosage: 1 VIAL
     Route: 030
     Dates: start: 20200823, end: 20200823
  28. OXYCODONE [Concomitant]
     Active Substance: OXYCODONE
     Indication: Analgesic therapy
     Route: 048
     Dates: start: 20191024, end: 20191026
  29. METARAMINOL [Concomitant]
     Active Substance: METARAMINOL
     Route: 042
     Dates: start: 20191023, end: 20191023
  30. OXYGEN [Concomitant]
     Active Substance: OXYGEN
     Dosage: 0.5/5
     Dates: start: 20191023, end: 20191023
  31. IBUPROFEN [Concomitant]
     Active Substance: IBUPROFEN
     Indication: Pain
     Route: 048
     Dates: start: 20220419, end: 20220419

REACTIONS (4)
  - Tongue operation [Recovered/Resolved]
  - Pharyngeal reconstruction [Recovered/Resolved]
  - Nasal septal operation [Recovered/Resolved]
  - Turbinectomy [Recovered/Resolved]

NARRATIVE: CASE EVENT DATE: 20191023
